FAERS Safety Report 17076534 (Version 5)
Quarter: 2020Q1

REPORT INFORMATION
  Report Type: Spontaneous
  Country: US (occurrence: US)
  Receive Date: 20191126
  Receipt Date: 20200121
  Transmission Date: 20200409
  Serious: Yes (Hospitalization, Disabling, Other)
  Sender: FDA-Public Use
  Company Number: US-SA-2019SA325117

PATIENT
  Age: 73 Year
  Sex: Female
  Weight: 106.5 kg

DRUGS (44)
  1. HUMALOG [Concomitant]
     Active Substance: INSULIN LISPRO
     Dosage: 80 U
     Dates: start: 20190928, end: 20190929
  2. LOSARTAN. [Concomitant]
     Active Substance: LOSARTAN
     Dosage: 50 MG
     Route: 065
  3. LEVOTHYROXINE. [Concomitant]
     Active Substance: LEVOTHYROXINE
     Dosage: 0.05 MG
     Route: 065
  4. PNEUMOCOCCAL 13 VALENT VACCINE [Concomitant]
     Active Substance: PNEUMOCOCCAL 13-VALENT CONJUGATE VACCINE
     Indication: IMMUNISATION
     Dosage: UNK UNK, UNK
     Route: 030
     Dates: start: 20191006
  5. FLUOXETINE [Concomitant]
     Active Substance: FLUOXETINE HYDROCHLORIDE
     Indication: ADVERSE EVENT
     Dosage: 20 MG
     Dates: start: 20191003
  6. LISPRO INSULIN [Concomitant]
     Active Substance: INSULIN LISPRO
     Indication: ADVERSE EVENT
     Dosage: 8 U
     Route: 065
     Dates: start: 20191126, end: 20191126
  7. NORMAL SALINE [Concomitant]
     Active Substance: SODIUM CHLORIDE
     Indication: ADVERSE EVENT
     Dosage: 2000 UNK
     Dates: start: 20191126, end: 20191126
  8. ISOVUE [Concomitant]
     Active Substance: IOPAMIDOL
     Dosage: 120 UNK
     Route: 065
     Dates: start: 20190927, end: 20190927
  9. ACETYLSALICYLIC ACID [Suspect]
     Active Substance: ASPIRIN
     Dosage: 100 MG, QD
     Route: 048
     Dates: start: 20190929, end: 20191017
  10. ACETYLSALICYLIC ACID [Suspect]
     Active Substance: ASPIRIN
     Dosage: 100 MG, QD
     Route: 048
     Dates: start: 20191018, end: 20191018
  11. ATORVASTATIN [Concomitant]
     Active Substance: ATORVASTATIN
     Dosage: 80 MG
     Route: 065
     Dates: start: 20190927
  12. HUMALOG [Concomitant]
     Active Substance: INSULIN LISPRO
     Dosage: 18 U
     Route: 065
     Dates: start: 20190928
  13. ACTOS [Concomitant]
     Active Substance: PIOGLITAZONE HYDROCHLORIDE
     Dosage: 30 MG
     Route: 065
  14. TRESIBA [Concomitant]
     Active Substance: INSULIN DEGLUDEC
     Dosage: 70 U
     Route: 065
     Dates: start: 20191107
  15. NORMAL SALINE [Concomitant]
     Active Substance: SODIUM CHLORIDE
     Dosage: 100 UNK
     Route: 065
     Dates: start: 20191126, end: 20191127
  16. CLOPIDOGREL BISULFATE. [Suspect]
     Active Substance: CLOPIDOGREL BISULFATE
     Dosage: 75 MG, QD
     Route: 048
     Dates: start: 20190928, end: 20190928
  17. ACETYLSALICYLIC ACID [Suspect]
     Active Substance: ASPIRIN
     Dosage: 100 MG, UNK
     Route: 065
     Dates: start: 20190927
  18. HUMALOG [Concomitant]
     Active Substance: INSULIN LISPRO
     Dosage: 18 U
     Route: 065
     Dates: start: 20190928
  19. MULTIHANCE [Concomitant]
     Active Substance: GADOBENATE DIMEGLUMINE
     Dosage: 10 UNK
     Route: 065
     Dates: start: 20190927, end: 20190927
  20. INSULIN [Concomitant]
     Active Substance: INSULIN NOS
     Dosage: 8 U
     Route: 065
     Dates: start: 20190928, end: 20190928
  21. ACTOS [Concomitant]
     Active Substance: PIOGLITAZONE HYDROCHLORIDE
     Dosage: 30 MG
  22. LOSARTAN. [Concomitant]
     Active Substance: LOSARTAN
     Dosage: 50 UNK
  23. LEVOTHYROXINE. [Concomitant]
     Active Substance: LEVOTHYROXINE
     Dosage: 0.05 UNK
  24. TRESIBA [Concomitant]
     Active Substance: INSULIN DEGLUDEC
     Dosage: 100 U, UNK
     Route: 065
     Dates: start: 20191010, end: 20191104
  25. VICTOZA [Concomitant]
     Active Substance: LIRAGLUTIDE
     Dosage: 0.6 MG
     Dates: start: 20190929
  26. TRESIBA [Concomitant]
     Active Substance: INSULIN DEGLUDEC
     Dosage: 90 U
     Dates: start: 20191105, end: 20191106
  27. NORCO [Concomitant]
     Active Substance: ACETAMINOPHEN\HYDROCODONE BITARTRATE
     Indication: ADVERSE EVENT
     Dosage: 4 MG
     Route: 065
     Dates: start: 20191031
  28. CLOPIDOGREL BISULFATE. [Suspect]
     Active Substance: CLOPIDOGREL BISULFATE
     Dosage: 75 MG, QD
     Route: 048
     Dates: start: 20191018, end: 20191018
  29. ACETYLSALICYLIC ACID [Suspect]
     Active Substance: ASPIRIN
     Dosage: 100 MG, QD
     Route: 048
     Dates: start: 20191019, end: 20191219
  30. METFORMIN [Concomitant]
     Active Substance: METFORMIN HYDROCHLORIDE
     Dosage: 1000 MG
     Route: 065
  31. INFLUENZA VACCINE [Concomitant]
     Active Substance: INFLUENZA VIRUS VACCINE
     Indication: IMMUNISATION
     Dosage: UNK UNK, UNK
     Route: 030
     Dates: start: 20191005, end: 20191005
  32. TRESIBA [Concomitant]
     Active Substance: INSULIN DEGLUDEC
     Dosage: 70 UNK
     Dates: start: 20191107
  33. LEVEMIR [Concomitant]
     Active Substance: INSULIN DETEMIR
     Indication: PROPHYLAXIS
     Dosage: 70 U
     Route: 065
     Dates: start: 20191126, end: 20191202
  34. ACETYLSALICYLIC ACID [Suspect]
     Active Substance: ASPIRIN
     Dosage: 100 MG, QD
     Route: 048
     Dates: start: 20190928, end: 20190928
  35. ACETYLSALICYLIC ACID [Suspect]
     Active Substance: ASPIRIN
     Dosage: 100 MG, QD
     Route: 048
     Dates: start: 20191220, end: 20191220
  36. GLIPIZIDE XL [Concomitant]
     Active Substance: GLIPIZIDE
     Dosage: 10 MG
     Route: 065
  37. MIRALAX [Concomitant]
     Active Substance: POLYETHYLENE GLYCOL 3350
     Indication: PROPHYLAXIS
     Dosage: 17 G
     Dates: start: 20190930
  38. TYLENOL [Concomitant]
     Active Substance: ACETAMINOPHEN
     Indication: ADVERSE EVENT
     Dosage: 3600 MG
     Route: 065
     Dates: start: 20191031
  39. CLOPIDOGREL BISULFATE. [Suspect]
     Active Substance: CLOPIDOGREL BISULFATE
     Dosage: 75 MG, QD
     Route: 048
     Dates: start: 20190929, end: 20191017
  40. ATORVASTATIN [Concomitant]
     Active Substance: ATORVASTATIN
     Dosage: 80 MG
     Route: 065
  41. PRAVASTATIN. [Concomitant]
     Active Substance: PRAVASTATIN
     Dosage: 40 MG, QD
     Route: 065
     Dates: start: 20190926
  42. METFORMIN [Concomitant]
     Active Substance: METFORMIN HYDROCHLORIDE
     Dosage: 1000 MG
  43. TRESIBA [Concomitant]
     Active Substance: INSULIN DEGLUDEC
     Dosage: 200 U
     Route: 065
     Dates: start: 20191008
  44. GLIPIZIDE XL [Concomitant]
     Active Substance: GLIPIZIDE
     Dosage: UNK

REACTIONS (2)
  - Syncope [Recovered/Resolved with Sequelae]
  - Stroke in evolution [Not Recovered/Not Resolved]

NARRATIVE: CASE EVENT DATE: 20190928
